FAERS Safety Report 23727984 (Version 1)
Quarter: 2024Q2

REPORT INFORMATION
  Report Type: Spontaneous
  Country: US (occurrence: None)
  Receive Date: 20240409
  Receipt Date: 20240409
  Transmission Date: 20240716
  Serious: No
  Sender: FDA-Public Use
  Company Number: None

PATIENT
  Age: 78 Year
  Sex: Male

DRUGS (3)
  1. FERUMOXYTOL [Suspect]
     Active Substance: FERUMOXYTOL
     Dosage: FREQUENCY : ONCE;?
     Route: 042
  2. 25 mg IV diphenhydramine [Concomitant]
     Dates: start: 20240206, end: 20240206
  3. 125 mg IV methylprednisolone [Concomitant]
     Dates: start: 20240206, end: 20240206

REACTIONS (5)
  - Hypoxia [None]
  - Stridor [None]
  - Anaphylactic reaction [None]
  - Infusion related reaction [None]
  - Haemorrhage intracranial [None]

NARRATIVE: CASE EVENT DATE: 20240206
